FAERS Safety Report 17042954 (Version 1)
Quarter: 2019Q4

REPORT INFORMATION
  Report Type: Spontaneous
  Country: FR (occurrence: FR)
  Receive Date: 20191118
  Receipt Date: 20191118
  Transmission Date: 20200122
  Serious: Yes (Other)
  Sender: FDA-Public Use
  Company Number: FR-BAYER-2019-204233

PATIENT

DRUGS (4)
  1. NEXAVAR [Suspect]
     Active Substance: SORAFENIB
     Indication: HEPATOCELLULAR CARCINOMA
     Dosage: 400 MG DAILY
     Dates: start: 201901
  2. NEXAVAR [Suspect]
     Active Substance: SORAFENIB
     Indication: HEPATOCELLULAR CARCINOMA
     Dosage: 400 MG DAILY
     Dates: start: 201909
  3. NEXAVAR [Suspect]
     Active Substance: SORAFENIB
     Indication: HEPATOCELLULAR CARCINOMA
     Dosage: 600 MG DAILY
     Dates: start: 201903, end: 201903
  4. NEXAVAR [Suspect]
     Active Substance: SORAFENIB
     Indication: HEPATOCELLULAR CARCINOMA
     Dosage: 400 MG DAILY
     Dates: end: 201905

REACTIONS (11)
  - Hypertension [Recovering/Resolving]
  - Diarrhoea [Recovered/Resolved]
  - Pulmonary embolism [Recovered/Resolved]
  - Asthenia [Recovering/Resolving]
  - Fall [None]
  - Hepatocellular carcinoma [None]
  - Weight decreased [Recovering/Resolving]
  - Muscle atrophy [None]
  - Gait disturbance [None]
  - Thrombocytopenia [None]
  - Palmar-plantar erythrodysaesthesia syndrome [Recovering/Resolving]

NARRATIVE: CASE EVENT DATE: 201901
